FAERS Safety Report 6385803-9 (Version None)
Quarter: 2009Q4

REPORT INFORMATION
  Report Type: 
  Country: None (occurrence: None)
  Receive Date: 20091002
  Receipt Date: 20081006
  Transmission Date: 20100525
  Serious: Yes (Hospitalization)
  Sender: FDA-Public Use
  Company Number: US-ASTRAZENECA-2008UW21860

PATIENT
  Age: 78 Year
  Sex: Female

DRUGS (10)
  1. ARIMIDEX [Suspect]
     Route: 048
     Dates: start: 20030101
  2. AMLODIPINE [Concomitant]
  3. LISINOPRIL [Concomitant]
     Route: 048
  4. ATENOLOL [Concomitant]
  5. LIPITOR [Concomitant]
  6. HYDROCHLOROTHIAZIDE [Concomitant]
  7. METFORMIN [Concomitant]
  8. OMEPRAZOLE [Concomitant]
     Route: 048
  9. DETROL [Concomitant]
  10. FOSAMAX [Concomitant]

REACTIONS (2)
  - ARTHRALGIA [None]
  - DIABETES MELLITUS [None]
